FAERS Safety Report 23135480 (Version 2)
Quarter: 2023Q4

REPORT INFORMATION
  Report Type: Spontaneous
  Country: US (occurrence: US)
  Receive Date: 20231101
  Receipt Date: 20231208
  Transmission Date: 20240110
  Serious: No
  Sender: FDA-Public Use
  Company Number: US-BRISTOL-MYERS SQUIBB COMPANY-2023-155459

PATIENT
  Age: 82 Year
  Sex: Female

DRUGS (2)
  1. LENALIDOMIDE [Suspect]
     Active Substance: LENALIDOMIDE
     Indication: Myelodysplastic syndrome with single lineage dysplasia
     Route: 048
     Dates: start: 20221216
  2. LENALIDOMIDE [Suspect]
     Active Substance: LENALIDOMIDE
     Indication: Myelodysplastic syndrome

REACTIONS (3)
  - Treatment noncompliance [Unknown]
  - Illness [Recovered/Resolved]
  - Product prescribing issue [Unknown]

NARRATIVE: CASE EVENT DATE: 20231029
